FAERS Safety Report 6959596-8 (Version None)
Quarter: 2010Q3

REPORT INFORMATION
  Report Type: 
  Country: None (occurrence: None)
  Receive Date: 20100823
  Receipt Date: 20100720
  Transmission Date: 20110219
  Serious: No
  Sender: FDA-Public Use
  Company Number: 010383

PATIENT
  Sex: Female
  Weight: 90.7 kg

DRUGS (1)
  1. CIMZIA [Suspect]
     Indication: CROHN'S DISEASE
     Dosage: (400 MG 1X/2 WEEKS SUBCUTANEOUS)
     Route: 058
     Dates: start: 20100411, end: 20100501

REACTIONS (6)
  - CROHN'S DISEASE [None]
  - DIZZINESS [None]
  - DRUG INEFFECTIVE [None]
  - IMMUNE SYSTEM DISORDER [None]
  - NAUSEA [None]
  - VOMITING [None]
